FAERS Safety Report 18227231 (Version 1)
Quarter: 2020Q3

REPORT INFORMATION
  Report Type: Spontaneous
  Country: US (occurrence: US)
  Receive Date: 20200903
  Receipt Date: 20200903
  Transmission Date: 20201103
  Serious: No
  Sender: FDA-Public Use
  Company Number: US-EISAI MEDICAL RESEARCH-EC-2020-079674

PATIENT
  Age: 81 Year
  Sex: Female
  Weight: 63.5 kg

DRUGS (2)
  1. ARICEPT [Suspect]
     Active Substance: DONEPEZIL HYDROCHLORIDE
     Indication: COGNITIVE DISORDER
     Route: 048
     Dates: start: 202007
  2. TOVIAZ [Concomitant]
     Active Substance: FESOTERODINE FUMARATE

REACTIONS (1)
  - Cognitive disorder [Unknown]

NARRATIVE: CASE EVENT DATE: 202007
